FAERS Safety Report 10159431 (Version 3)
Quarter: 2014Q2

REPORT INFORMATION
  Report Type: Spontaneous
  Country: JP (occurrence: JP)
  Receive Date: 20140508
  Receipt Date: 20140610
  Transmission Date: 20141212
  Serious: Yes (Life-Threatening, Hospitalization, Other)
  Sender: FDA-Public Use
  Company Number: JP-ELI_LILLY_AND_COMPANY-JP201405000023

PATIENT
  Age: 57 Year
  Sex: Male
  Weight: 94.5 kg

DRUGS (13)
  1. CYMBALTA [Suspect]
     Indication: SCHIZOAFFECTIVE DISORDER
     Dosage: 30 MG, UNK
     Route: 048
     Dates: end: 20120328
  2. CYMBALTA [Suspect]
     Indication: DEPRESSION
     Dosage: 40 MG, QD
     Route: 048
     Dates: start: 20120329, end: 20120405
  3. DEPROMEL                           /00615201/ [Suspect]
     Indication: SCHIZOAFFECTIVE DISORDER
     Dosage: 100 MG, TID
     Route: 048
     Dates: start: 20030613, end: 20120405
  4. DEPROMEL                           /00615201/ [Suspect]
     Indication: DEPRESSION
  5. CEPHADOL [Concomitant]
     Indication: VERTEBRAL ARTERY DISSECTION
     Dosage: 75 MG, TID
     Route: 048
     Dates: start: 19981113, end: 20130313
  6. LEXOTAN [Concomitant]
     Indication: SCHIZOAFFECTIVE DISORDER
     Dosage: 5 MG, QD
     Route: 048
  7. LEXOTAN [Concomitant]
     Indication: DEPRESSION
  8. ABILIT [Concomitant]
     Indication: SCHIZOAFFECTIVE DISORDER
     Dosage: 100 MG, TID
     Route: 048
  9. ABILIT [Concomitant]
     Indication: DEPRESSION
  10. LUDIOMIL                           /00331902/ [Concomitant]
     Indication: SCHIZOAFFECTIVE DISORDER
     Dosage: 50 MG, TID
     Route: 048
     Dates: start: 20040130, end: 20120405
  11. LUDIOMIL                           /00331902/ [Concomitant]
     Indication: DEPRESSION
  12. ABILIFY [Concomitant]
     Indication: SCHIZOAFFECTIVE DISORDER
     Dosage: 6 MG, QD
     Route: 048
     Dates: start: 20080111, end: 20120405
  13. ABILIFY [Concomitant]
     Indication: DEPRESSION

REACTIONS (2)
  - Serotonin syndrome [Recovering/Resolving]
  - Prinzmetal angina [Recovering/Resolving]
